FAERS Safety Report 7516047-2 (Version None)
Quarter: 2011Q2

REPORT INFORMATION
  Report Type: 
  Country: None (occurrence: None)
  Receive Date: 20110601
  Receipt Date: 20110526
  Transmission Date: 20111010
  Serious: Yes (Disabling)
  Sender: FDA-Public Use
  Company Number: JP-EISAI INC-E2020-09245-SPO-JP

PATIENT
  Age: 79 Year
  Sex: Male

DRUGS (1)
  1. ARICEPT [Suspect]
     Indication: DEMENTIA ALZHEIMER'S TYPE
     Route: 048
     Dates: start: 20080916, end: 20110413

REACTIONS (1)
  - PULMONARY FIBROSIS [None]
